FAERS Safety Report 8521727-6 (Version None)
Quarter: 2012Q3

REPORT INFORMATION
  Report Type: 
  Country: None (occurrence: None)
  Receive Date: 20120719
  Receipt Date: 20120716
  Transmission Date: 20120928
  Serious: Yes (Death)
  Sender: FDA-Public Use
  Company Number: PHHY2012US061140

PATIENT

DRUGS (2)
  1. FLUOROURACIL [Suspect]
  2. RADIATION THERAPY [Suspect]
     Dosage: 3.6 GY, UNK

REACTIONS (1)
  - SUDDEN DEATH [None]
